FAERS Safety Report 6752320-3 (Version None)
Quarter: 2010Q2

REPORT INFORMATION
  Report Type: 
  Country: None (occurrence: None)
  Receive Date: 20100602
  Receipt Date: 20100526
  Transmission Date: 20101027
  Serious: Yes (Hospitalization)
  Sender: FDA-Public Use
  Company Number: GXKR2010US05912

PATIENT
  Age: 58 Year
  Sex: Female

DRUGS (5)
  1. DOXORUBICIN (NGX) [Suspect]
     Indication: CHEMOTHERAPY
     Dosage: UNK
     Dates: start: 19900101, end: 19910101
  2. METHOTREXATE [Suspect]
     Indication: CHEMOTHERAPY
     Dosage: UNK
     Dates: start: 19900101, end: 19910101
  3. FLUOROURACIL [Suspect]
     Indication: CHEMOTHERAPY
     Dosage: UNK
     Dates: start: 19900101, end: 19910101
  4. CYCLOPHOSPHAMIDE [Suspect]
     Indication: CHEMOTHERAPY
     Dosage: UNK
     Dates: start: 19900101, end: 19910101
  5. THIOTEPA [Suspect]
     Indication: CHEMOTHERAPY
     Dosage: UNK
     Dates: start: 19900101, end: 19910101

REACTIONS (6)
  - APPENDICECTOMY [None]
  - BURKITT'S LYMPHOMA [None]
  - HYSTERECTOMY [None]
  - LYMPHADENECTOMY [None]
  - PELVIC MASS [None]
  - SALPINGO-OOPHORECTOMY BILATERAL [None]
